FAERS Safety Report 8622087-2 (Version None)
Quarter: 2012Q3

REPORT INFORMATION
  Report Type: 
  Country: None (occurrence: None)
  Receive Date: 20120825
  Receipt Date: 20120815
  Transmission Date: 20120928
  Serious: Yes (Other)
  Sender: FDA-Public Use
  Company Number: US-009507513-1010USA01911

PATIENT

DRUGS (14)
  1. PROAIR (ALBUTEROL SULFATE) [Concomitant]
     Indication: ASTHMA
     Dates: start: 20030113, end: 20090923
  2. GUAIFENESIN [Concomitant]
     Indication: RESPIRATORY TRACT CONGESTION
     Dosage: 600 MG, PRN
     Dates: start: 20030310, end: 20070803
  3. WELLBUTRIN [Concomitant]
     Indication: DEPRESSION
     Dates: start: 20030409, end: 20030609
  4. FOSAMAX [Suspect]
     Indication: OSTEOPOROSIS
  5. FOSAMAX [Suspect]
     Dosage: 70 MG, QW
     Route: 048
     Dates: start: 20080213, end: 20090501
  6. DIPHENOXYLATE [Concomitant]
     Indication: DIARRHOEA
     Dates: start: 20030322, end: 20030324
  7. ACTONEL [Suspect]
     Indication: OSTEOPOROSIS PROPHYLAXIS
  8. FOSAMAX [Suspect]
  9. NORVASC [Concomitant]
     Indication: HYPERTENSION
     Dosage: 5-10 MG QD
     Dates: start: 20030221, end: 20070427
  10. AMBIEN [Concomitant]
     Indication: SLEEP DISORDER
     Dates: start: 20030327, end: 20030427
  11. FOSAMAX [Suspect]
     Indication: OSTEOPENIA
     Dosage: 70 MG, QW
     Route: 048
     Dates: start: 20030417, end: 20080101
  12. ACTONEL [Suspect]
     Indication: OSTEOPENIA
     Dosage: 150 MG, UNK
     Dates: start: 20090730, end: 20090923
  13. CODEINE PHOSPHATE AND ACETAMINOPHEN [Concomitant]
     Indication: PAIN
     Dates: start: 20030124, end: 20061110
  14. FLUTICASONE PROPIONATE [Concomitant]
     Indication: ASTHMA
     Dosage: 250/50 MG BID
     Route: 048
     Dates: start: 20030409, end: 20091022

REACTIONS (25)
  - SQUAMOUS CELL CARCINOMA OF SKIN [None]
  - OSTEOMYELITIS [None]
  - BONE LOSS [None]
  - HAEMATOMA [None]
  - INFLAMMATION [None]
  - HYPERTHYROIDISM [None]
  - GINGIVITIS [None]
  - GOITRE [None]
  - MASS [None]
  - SPINAL COLUMN STENOSIS [None]
  - EMPHYSEMA [None]
  - NOCTURIA [None]
  - OSTEONECROSIS OF JAW [None]
  - PNEUMONIA [None]
  - BASEDOW'S DISEASE [None]
  - COUGH [None]
  - DIVERTICULUM [None]
  - BLOOD CHOLESTEROL INCREASED [None]
  - TACHYCARDIA [None]
  - DENTAL CARIES [None]
  - EXOSTOSIS [None]
  - HERPES ZOSTER [None]
  - WEIGHT DECREASED [None]
  - EYE IRRITATION [None]
  - THYROID NEOPLASM [None]
